FAERS Safety Report 11020331 (Version 2)
Quarter: 2015Q2

REPORT INFORMATION
  Report Type: Report from Study
  Country: CO (occurrence: CO)
  Receive Date: 20150413
  Receipt Date: 20150521
  Transmission Date: 20150821
  Serious: Yes (Disabling, Other)
  Sender: FDA-Public Use
  Company Number: CO-BRISTOL-MYERS SQUIBB COMPANY-BMS-2015-022241

PATIENT
  Age: 49 Year
  Sex: Female

DRUGS (1)
  1. CETUXIMAB [Suspect]
     Active Substance: CETUXIMAB
     Indication: COLON CANCER
     Dosage: 800 MG, Q2WK
     Route: 042
     Dates: start: 20150311

REACTIONS (3)
  - Rash pustular [Unknown]
  - Erythema [Unknown]
  - Delirium [Unknown]

NARRATIVE: CASE EVENT DATE: 201503
